FAERS Safety Report 12610902 (Version 1)
Quarter: 2016Q3

REPORT INFORMATION
  Report Type: Spontaneous
  Country: US (occurrence: US)
  Receive Date: 20160801
  Receipt Date: 20160801
  Transmission Date: 20161109
  Serious: No
  Sender: FDA-Public Use
  Company Number: US-PFIZER INC-2016355680

PATIENT
  Age: 13 Year
  Sex: Male

DRUGS (1)
  1. QUILLIVANT XR [Suspect]
     Active Substance: METHYLPHENIDATE HYDROCHLORIDE
     Dosage: 200 ML, UNK
     Dates: start: 201606

REACTIONS (4)
  - Drug ineffective [Unknown]
  - Abnormal behaviour [Unknown]
  - Poor quality sleep [Unknown]
  - Psychomotor hyperactivity [Unknown]
